FAERS Safety Report 9337544 (Version 1)
Quarter: 2013Q2

REPORT INFORMATION
  Report Type: Spontaneous
  Country: FR (occurrence: FR)
  Receive Date: 20130607
  Receipt Date: 20130607
  Transmission Date: 20140414
  Serious: Yes (Hospitalization)
  Sender: FDA-Public Use
  Company Number: FR-BAXTER-2013BAX020402

PATIENT
  Age: 58 Year
  Sex: Female

DRUGS (6)
  1. ENDOXAN 1000 MG, LYOPHILISAT POUR SOLUTION INJECTABLE [Suspect]
     Indication: OVARIAN EPITHELIAL CANCER
     Route: 042
     Dates: start: 20130408, end: 20130408
  2. CARBOPLATINE [Suspect]
     Indication: OVARIAN EPITHELIAL CANCER
     Route: 042
     Dates: start: 20130408, end: 20130408
  3. PLITICAN [Concomitant]
     Indication: PREMEDICATION
     Route: 065
     Dates: start: 20130408, end: 20130408
  4. PHLOROGLUCINOL HYDRATE [Concomitant]
     Indication: PREMEDICATION
     Route: 065
     Dates: start: 20130408, end: 20130408
  5. TRIMEBUTINE MALEATE [Concomitant]
     Indication: PREMEDICATION
     Route: 065
     Dates: start: 20130408, end: 20130408
  6. POLARAMINE [Concomitant]
     Indication: PREMEDICATION
     Route: 065
     Dates: start: 20130429, end: 20130429

REACTIONS (7)
  - Malaise [Recovered/Resolved]
  - Hyperhidrosis [Recovered/Resolved]
  - Flushing [Recovered/Resolved]
  - Nausea [Recovered/Resolved]
  - Abdominal pain [Recovered/Resolved]
  - Back pain [Unknown]
  - Pelvic pain [Unknown]
